FAERS Safety Report 10614653 (Version 1)
Quarter: 2014Q4

REPORT INFORMATION
  Report Type: Spontaneous
  Country: US (occurrence: US)
  Receive Date: 20141130
  Receipt Date: 20141130
  Transmission Date: 20150529
  Serious: Yes (Death)
  Sender: FDA-Public Use
  Company Number: US-BRISTOL-MYERS SQUIBB COMPANY-21638911

PATIENT
  Age: 50 Year
  Sex: Male

DRUGS (4)
  1. DROXIA [Suspect]
     Active Substance: HYDROXYUREA
  2. FUROSEMIDE. [Concomitant]
     Active Substance: FUROSEMIDE
  3. LACTULOSE. [Concomitant]
     Active Substance: LACTULOSE
  4. CARVEDILOL. [Concomitant]
     Active Substance: CARVEDILOL

REACTIONS (1)
  - Death [Fatal]

NARRATIVE: CASE EVENT DATE: 20141115
